FAERS Safety Report 19106560 (Version 4)
Quarter: 2021Q2

REPORT INFORMATION
  Report Type: Spontaneous
  Country: CA (occurrence: CA)
  Receive Date: 20210407
  Receipt Date: 20210526
  Transmission Date: 20210717
  Serious: Yes (Other)
  Sender: FDA-Public Use
  Company Number: CA-CELLTRION INC.-2020CA030781

PATIENT

DRUGS (5)
  1. INFLECTRA [Suspect]
     Active Substance: INFLIXIMAB-DYYB
     Dosage: 10MG/KG AT WEEK 0, 2, 6 AND THEN 8 WEEKS
     Route: 042
     Dates: start: 20210106
  2. INFLECTRA [Suspect]
     Active Substance: INFLIXIMAB-DYYB
     Dosage: 10MG/KG AT WEEK 0, 2, 6 AND THEN 8 WEEKS
     Route: 042
     Dates: start: 20201209
  3. INFLECTRA [Suspect]
     Active Substance: INFLIXIMAB-DYYB
     Indication: CROHN^S DISEASE
     Dosage: 10MG/KG AT WEEK 0, 2, 6 AND THEN 8 WEEKS
     Route: 042
     Dates: start: 20201124
  4. INFLECTRA [Suspect]
     Active Substance: INFLIXIMAB-DYYB
     Dosage: 10MG/KG AT WEEK 0, 2, 6 AND THEN 8 WEEKS
     Route: 042
     Dates: start: 20210303
  5. INFLECTRA [Suspect]
     Active Substance: INFLIXIMAB-DYYB
     Dosage: 10MG/KG AT WEEK 0, 2, 6 AND THEN 8 WEEKS
     Route: 042
     Dates: start: 20210428

REACTIONS (9)
  - Condition aggravated [Not Recovered/Not Resolved]
  - Arthralgia [Recovered/Resolved]
  - Drug level below therapeutic [Unknown]
  - Drug ineffective [Unknown]
  - Crohn^s disease [Unknown]
  - Rectal discharge [Not Recovered/Not Resolved]
  - Rectal haemorrhage [Not Recovered/Not Resolved]
  - Off label use [Unknown]
  - Pain [Unknown]

NARRATIVE: CASE EVENT DATE: 20210106
